FAERS Safety Report 6637337-1 (Version None)
Quarter: 2010Q1

REPORT INFORMATION
  Report Type: 
  Country: None (occurrence: None)
  Receive Date: 20100311
  Receipt Date: 20100224
  Transmission Date: 20100710
  Serious: Yes (Other)
  Sender: FDA-Public Use
  Company Number: 2010AP000388

PATIENT
  Age: 74 Year
  Sex: Male

DRUGS (10)
  1. RAMIPRIL [Suspect]
     Dosage: 1.25 MG;QD; PO
     Route: 048
     Dates: start: 20071128, end: 20100203
  2. ARANESP [Suspect]
     Indication: RENAL FAILURE CHRONIC
     Dosage: 60 ?G; SC; QOW
     Route: 058
  3. FLUOROURACIL [Concomitant]
  4. ATORVASTATIN CALCIUM [Concomitant]
  5. CYCLOPHOSPHAMIDE [Concomitant]
  6. DEXAMETHASONE TAB [Concomitant]
  7. RANITIDINE [Concomitant]
  8. THALIDOMIDE [Concomitant]
  9. WARFARIN SODIUM [Concomitant]
  10. MELPHALAN HYDROCHLORIDE [Concomitant]

REACTIONS (7)
  - BLOOD CREATININE INCREASED [None]
  - BLOOD PRODUCT TRANSFUSION DEPENDENT [None]
  - BLOOD UREA INCREASED [None]
  - BONE MARROW FAILURE [None]
  - CONDITION AGGRAVATED [None]
  - PANCYTOPENIA [None]
  - VITAMIN B12 INCREASED [None]
